FAERS Safety Report 9735200 (Version 1)
Quarter: 2013Q4

REPORT INFORMATION
  Report Type: Spontaneous
  Country: MY (occurrence: MY)
  Receive Date: 20131206
  Receipt Date: 20131206
  Transmission Date: 20140711
  Serious: Yes (Hospitalization)
  Sender: FDA-Public Use
  Company Number: MY-MERCK-1312MYS000380

PATIENT
  Age: 67 Year
  Sex: Male
  Weight: 68 kg

DRUGS (7)
  1. JANUVIA [Suspect]
     Indication: DIABETES MELLITUS
     Dosage: 100 MG, QD
     Route: 048
     Dates: start: 20131106, end: 20131128
  2. DABIGATRAN [Concomitant]
     Indication: ANTICOAGULANT THERAPY
     Dosage: 110 MG, BID
     Route: 048
  3. DONEPEZIL HYDROCHLORIDE [Concomitant]
     Indication: DEMENTIA
     Dosage: 5 MG, QD
     Route: 048
  4. METFORMIN [Concomitant]
     Indication: DIABETES MELLITUS
     Dosage: 1 G, BID
     Route: 048
  5. PIRITON [Concomitant]
     Dosage: 4 MG, UNK
     Route: 048
  6. BROMHEXINE HYDROCHLORIDE [Concomitant]
     Dosage: 8 MG, UNK
     Route: 048
  7. SIMVASTATIN [Concomitant]
     Dosage: 40 MG, EVERY NIGHT
     Route: 048

REACTIONS (1)
  - Oedema peripheral [Recovered/Resolved]
